FAERS Safety Report 9228107 (Version 2)
Quarter: 2013Q2

REPORT INFORMATION
  Report Type: Spontaneous
  Country: DE (occurrence: DE)
  Receive Date: 20130412
  Receipt Date: 20130530
  Transmission Date: 20140414
  Serious: Yes (Life-Threatening, Hospitalization, Other)
  Sender: FDA-Public Use
  Company Number: DE-ROCHE-1210693

PATIENT
  Age: 74 Year
  Sex: Female
  Weight: 77 kg

DRUGS (4)
  1. ACTILYSE [Suspect]
     Indication: POST PROCEDURAL PULMONARY EMBOLISM
     Route: 050
  2. UNFRACTIONATED HEPARIN [Suspect]
     Indication: POST PROCEDURAL PULMONARY EMBOLISM
     Dosage: 10000 IU BOLUS FOLLOWED BY CONTINUOUS HEPARIN ADMINISTRATION
     Route: 042
  3. NORADRENALIN [Concomitant]
     Route: 042
  4. ADRENALINE [Concomitant]

REACTIONS (7)
  - Haemodynamic instability [Recovered/Resolved]
  - Muscle haemorrhage [Unknown]
  - Post procedural haematoma [Unknown]
  - Wound haemorrhage [Unknown]
  - Pulmonary embolism [Unknown]
  - Paraparesis [Unknown]
  - Lumbar spinal stenosis [Unknown]
